FAERS Safety Report 4377505-5 (Version None)
Quarter: 2004Q2

REPORT INFORMATION
  Report Type: 
  Country: None (occurrence: None)
  Receive Date: 20040615
  Receipt Date: 20040428
  Transmission Date: 20050107
  Serious: Yes (Hospitalization)
  Sender: FDA-Public Use
  Company Number: US-BRISTOL-MYERS SQUIBB COMPANY-12574836

PATIENT
  Age: 57 Year
  Sex: Male

DRUGS (3)
  1. REYATAZ [Suspect]
     Indication: HIV INFECTION
     Route: 048
     Dates: start: 20031003, end: 20040402
  2. LOPINAVIR + RITONAVIR [Concomitant]
     Dosage: ON HOLD SINCE 02-APR-2004
     Dates: start: 20031003
  3. TENOFOVIR [Concomitant]
     Dosage: ON HOLD SINCE 02-APR-2004
     Dates: start: 20031003

REACTIONS (1)
  - CHOLELITHIASIS [None]
